FAERS Safety Report 8436608-6 (Version None)
Quarter: 2012Q2

REPORT INFORMATION
  Report Type: 
  Country: None (occurrence: None)
  Receive Date: 20120614
  Receipt Date: 20120604
  Transmission Date: 20120825
  Serious: No
  Sender: FDA-Public Use
  Company Number: US-ASTRAZENECA-2011SE38341

PATIENT
  Age: 65 Year
  Sex: Male

DRUGS (3)
  1. TOPROL-XL [Suspect]
     Route: 048
  2. DIURETIC [Concomitant]
  3. ASPIRIN [Concomitant]

REACTIONS (6)
  - PYREXIA [None]
  - INFLUENZA [None]
  - DRUG DEPENDENCE [None]
  - COUGH [None]
  - PULMONARY CONGESTION [None]
  - LIGAMENT SPRAIN [None]
